FAERS Safety Report 4712988-X (Version None)
Quarter: 2005Q3

REPORT INFORMATION
  Report Type: 
  Country: None (occurrence: None)
  Receive Date: 20050713
  Receipt Date: 20050705
  Transmission Date: 20060218
  Serious: Yes (Other)
  Sender: FDA-Public Use
  Company Number: PHBS2005GB09611

PATIENT
  Age: 22 Year
  Sex: Male

DRUGS (1)
  1. METHYSERGIDE MALEATE [Suspect]
     Indication: CLUSTER HEADACHE
     Dosage: 1 TO 12 MG/DAY

REACTIONS (9)
  - ANHEDONIA [None]
  - ANXIETY [None]
  - APATHY [None]
  - DEJA VU [None]
  - DEPERSONALISATION [None]
  - DEPRESSION [None]
  - HALLUCINATION [None]
  - ILLUSION [None]
  - MENTAL DISORDER [None]
